FAERS Safety Report 16898633 (Version 1)
Quarter: 2019Q4

REPORT INFORMATION
  Report Type: Spontaneous
  Country: US (occurrence: US)
  Receive Date: 20191009
  Receipt Date: 20191009
  Transmission Date: 20200122
  Serious: Yes (Other)
  Sender: FDA-Public Use
  Company Number: US-AKORN PHARMACEUTICALS-2019AKN02047

PATIENT
  Age: 17 Year
  Sex: Female
  Weight: 58.5 kg

DRUGS (4)
  1. MYORISAN [Suspect]
     Active Substance: ISOTRETINOIN
     Indication: ACNE
     Dosage: 30 MG, 2X/DAY
     Route: 061
     Dates: start: 20190405, end: 2019
  2. MYORISAN [Suspect]
     Active Substance: ISOTRETINOIN
     Indication: ACNE
     Dosage: 40 MG, 2X/DAY
     Route: 061
     Dates: start: 20190503, end: 20190917
  3. MYORISAN [Suspect]
     Active Substance: ISOTRETINOIN
     Dosage: 30 MG 2X/DAY
     Dates: start: 20190405
  4. JOLIVETTE [Concomitant]
     Active Substance: NORETHINDRONE

REACTIONS (5)
  - Mood swings [Recovered/Resolved]
  - Product use issue [Recovered/Resolved]
  - Chapped lips [Recovered/Resolved]
  - Headache [Recovered/Resolved]
  - Arthralgia [Recovered/Resolved]

NARRATIVE: CASE EVENT DATE: 2019
